FAERS Safety Report 13162551 (Version 1)
Quarter: 2017Q1

REPORT INFORMATION
  Report Type: Spontaneous
  Country: US (occurrence: US)
  Receive Date: 20170130
  Receipt Date: 20170130
  Transmission Date: 20170428
  Serious: No
  Sender: FDA-Public Use
  Company Number: US-PFIZER INC-2017034831

PATIENT
  Sex: Female

DRUGS (2)
  1. DIFLUCAN [Suspect]
     Active Substance: FLUCONAZOLE
     Dosage: ONE TABLET EVERY 3 DAYS FOR 12 DAYS
  2. DIFLUCAN [Suspect]
     Active Substance: FLUCONAZOLE
     Indication: CANDIDA INFECTION
     Dosage: 150 MG, WEEKLY (FOR 6 MONTHS)

REACTIONS (5)
  - Fungal infection [Unknown]
  - Product use issue [Unknown]
  - Tremor [Unknown]
  - Bacterial infection [Unknown]
  - Vulvovaginal candidiasis [Unknown]
